FAERS Safety Report 5958179-6 (Version None)
Quarter: 2008Q4

REPORT INFORMATION
  Report Type: 
  Country: None (occurrence: None)
  Receive Date: 20081117
  Receipt Date: 20080717
  Transmission Date: 20090506
  Serious: Yes (Death, Hospitalization)
  Sender: FDA-Public Use
  Company Number: 2008PV000058

PATIENT
  Age: 71 Year
  Sex: Female
  Weight: 74.8435 kg

DRUGS (12)
  1. DEPOCYT [Suspect]
     Indication: MANTLE CELL LYMPHOMA
     Dosage: 50 MG
     Dates: start: 20080526, end: 20080701
  2. CYCLOPHOSPHAMIDE [Concomitant]
  3. DOXORUBICIN HCL [Concomitant]
  4. VINCRISTINE [Concomitant]
  5. PREDNISOLONE [Concomitant]
  6. DEXAMETHASONE 0.5MG TAB [Concomitant]
  7. METOPROLOL TARTRATE [Concomitant]
  8. ENALAPRIL MALEATE [Concomitant]
  9. ASPIRIN [Concomitant]
  10. METOCLOPRAMIDE [Concomitant]
  11. BAYOTENSIN [Concomitant]
  12. PANTOPRAZOLE SODIUM [Concomitant]

REACTIONS (7)
  - EYE MOVEMENT DISORDER [None]
  - HYPOGLOSSAL NERVE PARESIS [None]
  - LEUKOENCEPHALOPATHY [None]
  - NAUSEA [None]
  - NERVOUS SYSTEM DISORDER [None]
  - PARANEOPLASTIC SYNDROME [None]
  - VOMITING [None]
